FAERS Safety Report 5475836-9 (Version None)
Quarter: 2007Q4

REPORT INFORMATION
  Report Type: 
  Country: None (occurrence: None)
  Receive Date: 20071003
  Receipt Date: 20070928
  Transmission Date: 20080405
  Serious: Yes (Other)
  Sender: FDA-Public Use
  Company Number: B0489480A

PATIENT
  Sex: Male

DRUGS (5)
  1. SERETIDE [Suspect]
     Indication: DRUG USE FOR UNKNOWN INDICATION
     Route: 065
     Dates: start: 20070701
  2. CITALOPRAM HYDROBROMIDE [Concomitant]
     Dosage: 20MG PER DAY
     Route: 065
  3. INSULIN [Concomitant]
     Route: 065
  4. BLOOD PRESSURE MEDICATION [Concomitant]
     Route: 065
  5. CHOLESTEROL REDUCING AGENT [Concomitant]
     Route: 065

REACTIONS (1)
  - CONVULSION [None]
